FAERS Safety Report 12719917 (Version 2)
Quarter: 2017Q2

REPORT INFORMATION
  Report Type: Spontaneous
  Country: US (occurrence: US)
  Receive Date: 20160907
  Receipt Date: 20170404
  Transmission Date: 20170830
  Serious: Yes (Other)
  Sender: FDA-Public Use
  Company Number: US-JNJFOC-20150713649

PATIENT
  Age: 49 Year
  Sex: Male
  Weight: 131.54 kg

DRUGS (31)
  1. LEVAQUIN [Suspect]
     Active Substance: LEVOFLOXACIN
     Indication: PNEUMONIA
     Dosage: FOR 10 DAYS
     Route: 048
     Dates: start: 20130309, end: 201303
  2. LEVAQUIN [Suspect]
     Active Substance: LEVOFLOXACIN
     Indication: URINARY TRACT INFECTION
     Dosage: FOR 14 DAYS
     Route: 048
     Dates: start: 20070618, end: 200707
  3. LEVAQUIN [Suspect]
     Active Substance: LEVOFLOXACIN
     Indication: PNEUMONIA
     Dosage: FOR 10 DAYS
     Route: 048
     Dates: start: 20140416, end: 201404
  4. LEVAQUIN [Suspect]
     Active Substance: LEVOFLOXACIN
     Indication: LOCALISED INFECTION
     Dosage: FOR 10 DAYS
     Route: 048
     Dates: start: 20130309, end: 201303
  5. LEVAQUIN [Suspect]
     Active Substance: LEVOFLOXACIN
     Indication: URINARY TRACT INFECTION
     Dosage: FOR 15 DAYS
     Route: 048
     Dates: start: 20000706, end: 200007
  6. CIPRO [Suspect]
     Active Substance: CIPROFLOXACIN HYDROCHLORIDE
     Indication: URINARY TRACT INFECTION
     Dosage: FOR 14 DAYS
     Route: 065
     Dates: start: 20140818, end: 2014
  7. LEVAQUIN [Suspect]
     Active Substance: LEVOFLOXACIN
     Indication: LOCALISED INFECTION
     Dosage: FOR 10 DAYS
     Route: 048
     Dates: start: 20080612, end: 200806
  8. LEVAQUIN [Suspect]
     Active Substance: LEVOFLOXACIN
     Indication: PNEUMONIA
     Dosage: FOR 15 DAYS
     Route: 048
     Dates: start: 20080904, end: 200809
  9. LEVAQUIN [Suspect]
     Active Substance: LEVOFLOXACIN
     Indication: PNEUMONIA
     Dosage: FOR 10 DAYS
     Route: 048
     Dates: start: 19980511, end: 199805
  10. LEVAQUIN [Suspect]
     Active Substance: LEVOFLOXACIN
     Indication: URINARY TRACT INFECTION
     Dosage: FOR 15 DAYS
     Route: 048
     Dates: start: 19980330, end: 199804
  11. LEVAQUIN [Suspect]
     Active Substance: LEVOFLOXACIN
     Indication: URINARY TRACT INFECTION
     Dosage: FOR 10 DAYS
     Route: 048
     Dates: start: 19980511, end: 199805
  12. GATIFLOXACIN. [Suspect]
     Active Substance: GATIFLOXACIN
     Indication: PRODUCT USED FOR UNKNOWN INDICATION
     Dosage: FOR 10 DAYS
     Route: 065
     Dates: start: 20060206, end: 200602
  13. LEVAQUIN [Suspect]
     Active Substance: LEVOFLOXACIN
     Indication: PNEUMONIA
     Dosage: FOR 14 DAYS
     Route: 048
     Dates: start: 20070618, end: 200707
  14. LEVAQUIN [Suspect]
     Active Substance: LEVOFLOXACIN
     Indication: PNEUMONIA
     Dosage: FOR 15 DAYS
     Route: 048
     Dates: start: 19980330, end: 199804
  15. LEVAQUIN [Suspect]
     Active Substance: LEVOFLOXACIN
     Indication: LOCALISED INFECTION
     Dosage: FOR 15 DAYS
     Route: 048
     Dates: start: 20121207, end: 201212
  16. LEVAQUIN [Suspect]
     Active Substance: LEVOFLOXACIN
     Indication: LOCALISED INFECTION
     Dosage: FOR 15 DAYS
     Route: 048
     Dates: start: 19980330, end: 199804
  17. LEVAQUIN [Suspect]
     Active Substance: LEVOFLOXACIN
     Indication: LOCALISED INFECTION
     Dosage: FOR 14 DAYS
     Route: 048
     Dates: start: 20070618, end: 200707
  18. LEVAQUIN [Suspect]
     Active Substance: LEVOFLOXACIN
     Indication: URINARY TRACT INFECTION
     Dosage: FOR 10 DAYS
     Route: 048
     Dates: start: 20130309, end: 201303
  19. CIPRO [Suspect]
     Active Substance: CIPROFLOXACIN HYDROCHLORIDE
     Indication: URINARY TRACT INFECTION
     Dosage: FOR 7 DAYS
     Route: 065
     Dates: start: 20100916, end: 201009
  20. LEVAQUIN [Suspect]
     Active Substance: LEVOFLOXACIN
     Indication: PNEUMONIA
     Dosage: FOR 15 DAYS
     Route: 048
     Dates: start: 20121207, end: 201212
  21. LEVAQUIN [Suspect]
     Active Substance: LEVOFLOXACIN
     Indication: LOCALISED INFECTION
     Dosage: FOR 15 DAYS
     Route: 048
     Dates: start: 20080904, end: 200809
  22. LEVAQUIN [Suspect]
     Active Substance: LEVOFLOXACIN
     Indication: URINARY TRACT INFECTION
     Dosage: FOR 15 DAYS
     Route: 048
     Dates: start: 20121207, end: 201212
  23. LEVAQUIN [Suspect]
     Active Substance: LEVOFLOXACIN
     Indication: URINARY TRACT INFECTION
     Dosage: FOR 10 DAYS
     Route: 048
     Dates: start: 20140416, end: 201404
  24. LEVAQUIN [Suspect]
     Active Substance: LEVOFLOXACIN
     Indication: PNEUMONIA
     Dosage: FOR 10 DAYS
     Route: 048
     Dates: start: 20080612, end: 200806
  25. LEVAQUIN [Suspect]
     Active Substance: LEVOFLOXACIN
     Indication: PNEUMONIA
     Dosage: FOR 15 DAYS
     Route: 048
     Dates: start: 20000706, end: 200007
  26. LEVAQUIN [Suspect]
     Active Substance: LEVOFLOXACIN
     Indication: LOCALISED INFECTION
     Dosage: FOR 15 DAYS
     Route: 048
     Dates: start: 20000706, end: 200007
  27. LEVAQUIN [Suspect]
     Active Substance: LEVOFLOXACIN
     Indication: LOCALISED INFECTION
     Dosage: FOR 10 DAYS
     Route: 048
     Dates: start: 19980511, end: 199805
  28. LEVAQUIN [Suspect]
     Active Substance: LEVOFLOXACIN
     Indication: LOCALISED INFECTION
     Dosage: FOR 10 DAYS
     Route: 048
     Dates: start: 20140416, end: 201404
  29. LEVAQUIN [Suspect]
     Active Substance: LEVOFLOXACIN
     Indication: URINARY TRACT INFECTION
     Dosage: FOR 10 DAYS
     Route: 048
     Dates: start: 20080612, end: 200806
  30. LEVAQUIN [Suspect]
     Active Substance: LEVOFLOXACIN
     Indication: URINARY TRACT INFECTION
     Dosage: FOR 15 DAYS
     Route: 048
     Dates: start: 20080904, end: 200809
  31. CIPRO [Suspect]
     Active Substance: CIPROFLOXACIN HYDROCHLORIDE
     Indication: URINARY TRACT INFECTION
     Dosage: FOR 28 DAYS
     Route: 065
     Dates: start: 20030205, end: 200303

REACTIONS (1)
  - Neuropathy peripheral [Not Recovered/Not Resolved]

NARRATIVE: CASE EVENT DATE: 199807
